FAERS Safety Report 21336341 (Version 4)
Quarter: 2022Q4

REPORT INFORMATION
  Report Type: Report from Study
  Country: CA (occurrence: CA)
  Receive Date: 20220915
  Receipt Date: 20221205
  Transmission Date: 20230113
  Serious: Yes (Death, Other)
  Sender: FDA-Public Use
  Company Number: CA-JNJFOC-20220925938

PATIENT
  Sex: Male

DRUGS (2)
  1. REMICADE [Suspect]
     Active Substance: INFLIXIMAB
     Indication: Crohn^s disease
     Route: 064
  2. REMICADE [Suspect]
     Active Substance: INFLIXIMAB
     Route: 064
     Dates: start: 20170418

REACTIONS (4)
  - Death neonatal [Fatal]
  - Foetal exposure during pregnancy [Recovered/Resolved]
  - Spinal deformity [Unknown]
  - Foetal malformation [Unknown]

NARRATIVE: CASE EVENT DATE: 20220101
